FAERS Safety Report 7478152-9 (Version None)
Quarter: 2011Q2

REPORT INFORMATION
  Report Type: 
  Country: None (occurrence: None)
  Receive Date: 20110511
  Receipt Date: 20110511
  Transmission Date: 20111010
  Serious: Yes (Other)
  Sender: FDA-Public Use
  Company Number: None

PATIENT
  Age: 52 Year
  Sex: Female
  Weight: 54.4316 kg

DRUGS (1)
  1. AZITHROMYCIN [Suspect]
     Indication: SINUSITIS
     Dosage: 2 FIRST DAY, 1 EACH DAY AFTER PO
     Route: 048
     Dates: start: 20110506, end: 20110509

REACTIONS (4)
  - ASTHENIA [None]
  - ABDOMINAL DISCOMFORT [None]
  - PRODUCT QUALITY ISSUE [None]
  - DIARRHOEA [None]
